FAERS Safety Report 4308630-2 (Version None)
Quarter: 2004Q1

REPORT INFORMATION
  Report Type: 
  Country: None (occurrence: None)
  Receive Date: 20040227
  Receipt Date: 20040220
  Transmission Date: 20041129
  Serious: Yes (Hospitalization)
  Sender: FDA-Public Use
  Company Number: TPA2004A00169

PATIENT
  Age: 52 Year
  Sex: Male
  Weight: 167.3773 kg

DRUGS (15)
  1. ACTOS [Suspect]
     Indication: DIABETES MELLITUS
     Dosage: 15 MG, 1 IN 1 D, PER ORAL
     Route: 048
     Dates: start: 20030201
  2. CEPHALEXIN [Suspect]
     Indication: INFECTION
     Dates: start: 20030701, end: 20030701
  3. CIPROFLOXACIN [Concomitant]
     Indication: INFECTION
     Dates: start: 20030801, end: 20030801
  4. AMITRIPTYLINE HCL [Suspect]
     Indication: SWELLING FACE
     Dates: start: 20031001, end: 20031001
  5. PLAVIX [Concomitant]
  6. NOVOLIN R [Concomitant]
  7. NOVOLIN N [Concomitant]
  8. LESCOL [Suspect]
  9. LOTENSIN HCT (CIBADEX ^CIBA-GEIGY^) [Concomitant]
  10. ZANTAC [Concomitant]
  11. PAXIL (PAROXETINE HYDROCHLO [Concomitant]
  12. NAPROXEN [Concomitant]
  13. ALPRAZOLAM [Concomitant]
  14. VIAGRA [Concomitant]
  15. XANAX [Concomitant]

REACTIONS (19)
  - ARTHROPOD BITE [None]
  - ASTHENIA [None]
  - BLOOD PRESSURE INCREASED [None]
  - CARDIAC FLUTTER [None]
  - DYSKINESIA [None]
  - FACIAL PALSY [None]
  - HEADACHE [None]
  - HEMIPARESIS [None]
  - HYPERAESTHESIA [None]
  - HYPOAESTHESIA [None]
  - LOCALISED INFECTION [None]
  - NAUSEA [None]
  - PHOTOPHOBIA [None]
  - POST PROCEDURAL COMPLICATION [None]
  - PRURITUS [None]
  - SWELLING FACE [None]
  - TREMOR [None]
  - VISION BLURRED [None]
  - VOMITING [None]
